FAERS Safety Report 8518485 (Version 2)
Quarter: 2012Q4

REPORT INFORMATION
  Report Type: 
  Country: US (occurrence: US)
  Receive Date: 20120417
  Receipt Date: 20121120
  Transmission Date: 20130627
  Serious: Yes (Other)
  Sender: FDA-Public Use
  Company Number: US-ASTRAZENECA-2012SE08592

PATIENT
  Age: 47 Year
  Sex: Male
  Weight: 85.3 kg

DRUGS (14)
  1. NEXIUM [Suspect]
     Route: 048
  2. LISINOPRIL [Suspect]
     Route: 048
  3. METOPROLOL [Suspect]
     Route: 048
  4. OMEPRAZOLE [Suspect]
     Route: 048
  5. TRAMADOL [Concomitant]
     Route: 048
  6. ASPIRIN [Concomitant]
     Route: 048
  7. CYANOCOBALAMIN [Concomitant]
     Dosage: 1000 MCG/ML EVERY MONTH
     Route: 030
  8. DULCOLAX [Concomitant]
     Route: 048
  9. IPRATROPIUM BROMIDE [Concomitant]
     Route: 055
  10. LASIX [Concomitant]
     Indication: OEDEMA
     Dosage: HALF-ONE TABLET EVERY DAY
     Route: 048
  11. LASIX [Concomitant]
     Indication: HYPERTENSION
     Dosage: HALF-ONE TABLET EVERY DAY
     Route: 048
  12. PENICILLIN V POTASSIUM [Concomitant]
     Route: 048
  13. POTASSIUM CHLORIDE [Concomitant]
     Route: 048
  14. VERAPAMIL ER [Concomitant]
     Route: 048

REACTIONS (6)
  - Cough [Unknown]
  - Hypertrophic cardiomyopathy [Unknown]
  - Drug hypersensitivity [Unknown]
  - Gastrooesophageal reflux disease [Unknown]
  - Drug effect decreased [Unknown]
  - Adverse drug reaction [Unknown]
